FAERS Safety Report 20681024 (Version 1)
Quarter: 2022Q2

REPORT INFORMATION
  Report Type: Spontaneous
  Country: GB (occurrence: GB)
  Receive Date: 20220406
  Receipt Date: 20220406
  Transmission Date: 20220721
  Serious: Yes (Other)
  Sender: FDA-Public Use
  Company Number: None

PATIENT

DRUGS (6)
  1. IBUPROFEN [Suspect]
     Active Substance: IBUPROFEN
     Indication: Product used for unknown indication
     Route: 065
     Dates: start: 20220331
  2. AMITRIPTYLINE HYDROCHLORIDE [Concomitant]
     Active Substance: AMITRIPTYLINE HYDROCHLORIDE
     Dosage: TAKE ONE OR TWO TABLETS EACH NIGHT WHN REQUIRED...
     Dates: start: 20220331
  3. DIAZEPAM [Concomitant]
     Active Substance: DIAZEPAM
     Dosage: AS NEEDED
     Dates: start: 20220322, end: 20220329
  4. HYDROCORTISONE [Concomitant]
     Active Substance: HYDROCORTISONE
     Dosage: APPLY THINLY ONCE OR TWICE DAILY AS DIRECTED
     Dates: start: 20220202, end: 20220304
  5. KETOCONAZOLE [Concomitant]
     Active Substance: KETOCONAZOLE
     Dosage: USE AS A SHOWER GEL
     Dates: start: 20220202, end: 20220302
  6. NAPROXEN [Concomitant]
     Active Substance: NAPROXEN
     Dates: start: 20220322

REACTIONS (2)
  - Lip swelling [Recovered/Resolved]
  - Pruritus [Unknown]

NARRATIVE: CASE EVENT DATE: 20220331
